FAERS Safety Report 17976332 (Version 2)
Quarter: 2020Q3

REPORT INFORMATION
  Report Type: Spontaneous
  Country: CH (occurrence: CH)
  Receive Date: 20200702
  Receipt Date: 20200708
  Transmission Date: 20201103
  Serious: Yes (Hospitalization, Other)
  Sender: FDA-Public Use
  Company Number: CH-BRISTOL-MYERS SQUIBB COMPANY-BMS-2020-052639

PATIENT
  Sex: Male
  Weight: 80 kg

DRUGS (4)
  1. YERVOY [Suspect]
     Active Substance: IPILIMUMAB
     Indication: METASTATIC MALIGNANT MELANOMA
     Dosage: 240 MILLIGRAMS IN SODIUM CHLORIDE
     Route: 065
     Dates: start: 20200214, end: 20200214
  2. YERVOY [Suspect]
     Active Substance: IPILIMUMAB
     Dosage: 240 MILLIGRAMS IN SODIUM CHLORIDE
     Route: 065
     Dates: start: 20200310, end: 20200310
  3. OPDIVO [Suspect]
     Active Substance: NIVOLUMAB
     Indication: METASTATIC MALIGNANT MELANOMA
     Dosage: 80 MILLIGRAM IN SODIUM CHLORIDE
     Route: 042
     Dates: start: 20200214, end: 20200214
  4. OPDIVO [Suspect]
     Active Substance: NIVOLUMAB
     Dosage: 80 MILLIGRAM IN SODIUM CHLORIDE
     Route: 042
     Dates: start: 20200310, end: 20200310

REACTIONS (4)
  - Large intestine polyp [Recovering/Resolving]
  - Acute kidney injury [Recovering/Resolving]
  - Immune-mediated enterocolitis [Recovering/Resolving]
  - Haemorrhoids [Recovering/Resolving]
